FAERS Safety Report 6295951 (Version 13)
Quarter: 2013Q3

REPORT INFORMATION
  Report Type: Spontaneous
  Country: US (occurrence: US)
  Receive Date: 20070425
  Receipt Date: 20130909
  Transmission Date: 20140515
  Serious: Yes (Death, Hospitalization, Other)
  Sender: FDA-Public Use
  Company Number: PHEH2007US05544

PATIENT
  Age: 39 Year
  Sex: Female

DRUGS (28)
  1. AREDIA [Suspect]
     Dosage: 90 MG
     Route: 042
     Dates: start: 200209, end: 200405
  2. ZOMETA [Suspect]
     Dosage: 4 MG
     Route: 042
     Dates: start: 20020814, end: 20020814
  3. ZOLADEX [Concomitant]
  4. ARIMIDEX ^ASTRAZENECA^ [Concomitant]
  5. AROMASIN [Concomitant]
     Dates: start: 2004
  6. XELODA [Concomitant]
  7. METOPROLOL [Concomitant]
  8. PERCOCET [Concomitant]
  9. OXYCODONE [Concomitant]
  10. ENOXAPARIN [Concomitant]
  11. ADVAIR [Concomitant]
     Dates: start: 20070425
  12. SENOKOT [Concomitant]
  13. SYNTHROID [Concomitant]
     Dosage: 50 UG, QD
     Dates: start: 20070425
  14. DOCUSATE [Concomitant]
     Route: 048
  15. MORPHINE [Concomitant]
     Dates: start: 20070424
  16. MORPHINE [Concomitant]
  17. ALBUTEROL [Concomitant]
     Dosage: 2 DF,
     Dates: start: 20070424
  18. ATIVAN [Concomitant]
     Dates: start: 20070424
  19. TYLENOL [Concomitant]
     Dosage: 650 MG, PRN
     Route: 048
  20. PHYTONADIONE [Concomitant]
     Dosage: 10 MG, QD
     Route: 048
  21. ZOSYN [Concomitant]
     Dosage: 3.375 G
     Route: 042
  22. NYSTATIN [Concomitant]
  23. PROTONIX [Concomitant]
     Dosage: 40 MG
  24. PHAZYME [Concomitant]
     Dosage: 80 MG,
     Dates: start: 20070707
  25. LASIX [Concomitant]
     Dosage: 40 MG,
     Dates: start: 20070708
  26. K-DUR [Concomitant]
     Dosage: 20 MEQ,
     Dates: start: 20070706
  27. LEVOXYL [Concomitant]
     Dosage: 50 MG, QD
     Dates: start: 20070523
  28. DILAUDID [Concomitant]
     Dosage: 2 MG

REACTIONS (49)
  - Death [Fatal]
  - Syncope [Unknown]
  - Pulmonary embolism [Unknown]
  - Dyspnoea [Unknown]
  - Inspiratory capacity decreased [Unknown]
  - Aspiration pleural cavity [Recovered/Resolved]
  - Lung consolidation [Unknown]
  - Deep vein thrombosis [Unknown]
  - Blood glucose increased [Unknown]
  - Type 2 diabetes mellitus [Unknown]
  - Pleural effusion [Unknown]
  - Asthenia [Unknown]
  - Atelectasis [Unknown]
  - Pneumonia [Unknown]
  - Osteonecrosis of jaw [Unknown]
  - Pain [Unknown]
  - Injury [Unknown]
  - Anxiety [Unknown]
  - Fall [Unknown]
  - Hip fracture [Unknown]
  - Metastases to lymph nodes [Unknown]
  - Humerus fracture [Unknown]
  - Rib fracture [Unknown]
  - Metastatic pain [Unknown]
  - Neoplasm progression [Unknown]
  - Dizziness [Unknown]
  - Myalgia [Unknown]
  - Arthralgia [Unknown]
  - Skin lesion [Unknown]
  - Groin pain [Unknown]
  - Infusion related reaction [Unknown]
  - Tooth injury [Unknown]
  - Bone pain [Unknown]
  - Pyrexia [Unknown]
  - Chills [Unknown]
  - Local swelling [Unknown]
  - Metastases to bone [Unknown]
  - Spinal osteoarthritis [Unknown]
  - Spinal compression fracture [Unknown]
  - Metastases to spine [Unknown]
  - Clavicle fracture [Unknown]
  - Wheezing [Unknown]
  - Metastatic neoplasm [Unknown]
  - Metastases to lung [Unknown]
  - Intervertebral disc space narrowing [Unknown]
  - Venous stenosis [Unknown]
  - Fibrosis [Unknown]
  - Telangiectasia [Unknown]
  - Bursitis [Unknown]
